FAERS Safety Report 7257458-2 (Version None)
Quarter: 2011Q1

REPORT INFORMATION
  Report Type: 
  Country: None (occurrence: None)
  Receive Date: 20110129
  Receipt Date: 20100524
  Transmission Date: 20110831
  Serious: No
  Sender: FDA-Public Use
  Company Number: US-ABBOTT-10P-163-0646558-00

PATIENT
  Sex: Female

DRUGS (3)
  1. HUMIRA [Suspect]
     Dates: start: 20100401
  2. HUMIRA [Suspect]
     Indication: PSORIASIS
     Dates: start: 20090401, end: 20090401
  3. HUMIRA [Suspect]
     Dosage: ONE WEEK LATER
     Route: 058
     Dates: start: 20100401, end: 20100401

REACTIONS (2)
  - INJECTION SITE PAIN [None]
  - INJECTION SITE ERYTHEMA [None]
